FAERS Safety Report 15364740 (Version 2)
Quarter: 2018Q4

REPORT INFORMATION
  Report Type: Spontaneous
  Country: JP (occurrence: JP)
  Receive Date: 20180910
  Receipt Date: 20180919
  Transmission Date: 20190204
  Serious: Yes (Life-Threatening, Hospitalization)
  Sender: FDA-Public Use
  Company Number: JP-TEVA-2018-JP-950458

PATIENT
  Age: 84 Year
  Sex: Female
  Weight: 36 kg

DRUGS (12)
  1. ACELIO [Interacting]
     Active Substance: ACETAMINOPHEN
     Dosage: (1000MG X 4)
     Route: 065
  2. LANSOPRAZOLE. [Suspect]
     Active Substance: LANSOPRAZOLE
     Dosage: 15 MILLIGRAM DAILY;
     Route: 065
  3. ACELIO [Interacting]
     Active Substance: ACETAMINOPHEN
     Route: 065
  4. DONEPEZIL. [Concomitant]
     Active Substance: DONEPEZIL
     Dosage: 5 MILLIGRAM DAILY;
     Route: 065
  5. ISOSORBIDE DINITRATE. [Concomitant]
     Active Substance: ISOSORBIDE DINITRATE
     Dosage: 20 MILLIGRAM DAILY;
     Route: 065
  6. ETIZOLAM [Concomitant]
     Active Substance: ETIZOLAM
     Dosage: 1 MILLIGRAM DAILY;
     Route: 065
  7. MAGNESIUM OXIDE. [Concomitant]
     Active Substance: MAGNESIUM OXIDE
     Dosage: 1000 MILLIGRAM DAILY;
     Route: 065
  8. ACELIO [Interacting]
     Active Substance: ACETAMINOPHEN
     Dosage: (500MG+1000MG+1000MG)
     Route: 065
  9. URAPIDIL [Concomitant]
     Active Substance: URAPIDIL
     Dosage: 60 MILLIGRAM DAILY;
     Route: 065
  10. MILNACIPRAN [Concomitant]
     Active Substance: MILNACIPRAN
     Dosage: 100 MILLIGRAM DAILY;
     Route: 065
  11. LORAZEPAM. [Concomitant]
     Active Substance: LORAZEPAM
     Dosage: 1.5 MILLIGRAM DAILY;
     Route: 065
  12. DETRUSITOL [Concomitant]
     Active Substance: TOLTERODINE TARTRATE
     Dosage: 2 MILLIGRAM DAILY;
     Route: 065

REACTIONS (4)
  - Acute hepatic failure [Recovering/Resolving]
  - Drug interaction [Unknown]
  - Overdose [Unknown]
  - Hepatic encephalopathy [Recovering/Resolving]
